FAERS Safety Report 10423381 (Version 1)
Quarter: 2014Q3

REPORT INFORMATION
  Report Type: Spontaneous
  Country: US (occurrence: None)
  Receive Date: 20140728
  Receipt Date: 20140728
  Transmission Date: 20150326
  Serious: Yes (Hospitalization)
  Sender: FDA-Public Use
  Company Number: PHEH2013US013758

PATIENT
  Age: 62 Year
  Sex: Male

DRUGS (2)
  1. FORADIL [Suspect]
     Active Substance: FORMOTEROL FUMARATE
     Indication: DYSPNOEA
     Route: 055
     Dates: start: 201304
  2. OXYGEN. [Concomitant]
     Active Substance: OXYGEN

REACTIONS (4)
  - Device malfunction [None]
  - Dyspnoea [None]
  - Pneumonia [None]
  - Dysphonia [None]

NARRATIVE: CASE EVENT DATE: 201304
